FAERS Safety Report 11623185 (Version 1)
Quarter: 2015Q4

REPORT INFORMATION
  Report Type: Spontaneous
  Country: US (occurrence: US)
  Receive Date: 20151013
  Receipt Date: 20151013
  Transmission Date: 20160304
  Serious: No
  Sender: FDA-Public Use
  Company Number: US-JNJFOC-20150312827

PATIENT
  Age: 11 Month
  Sex: Female

DRUGS (1)
  1. INFANTS TYLENOL [Suspect]
     Active Substance: ACETAMINOPHEN
     Indication: TEETHING
     Dosage: QUITE OFTEN
     Route: 048

REACTIONS (2)
  - Product contamination physical [Unknown]
  - Inappropriate schedule of drug administration [Unknown]
